FAERS Safety Report 9130438 (Version 1)
Quarter: 2013Q1

REPORT INFORMATION
  Report Type: Spontaneous
  Country: CN (occurrence: CN)
  Receive Date: 20130301
  Receipt Date: 20130301
  Transmission Date: 20140127
  Serious: Yes (Hospitalization)
  Sender: FDA-Public Use
  Company Number: CN-009507513-1302CHN011955

PATIENT
  Age: 87 Year
  Sex: Male

DRUGS (1)
  1. PROSCAR [Suspect]
     Indication: BENIGN PROSTATIC HYPERPLASIA
     Dosage: 5 MG, QD
     Route: 048
     Dates: start: 2010

REACTIONS (6)
  - Micturition urgency [Recovering/Resolving]
  - Nasopharyngitis [Recovered/Resolved]
  - Pollakiuria [Recovering/Resolving]
  - Urinary retention [Recovering/Resolving]
  - General physical health deterioration [Not Recovered/Not Resolved]
  - Headache [Recovered/Resolved]
